FAERS Safety Report 10442401 (Version 3)
Quarter: 2014Q4

REPORT INFORMATION
  Report Type: Spontaneous
  Country: US (occurrence: US)
  Receive Date: 20140909
  Receipt Date: 20141210
  Transmission Date: 20150528
  Serious: Yes (Hospitalization)
  Sender: FDA-Public Use
  Company Number: US-BAYER-2014-130299

PATIENT
  Age: 39 Year
  Sex: Female
  Weight: 86 kg

DRUGS (1)
  1. MIRENA [Suspect]
     Active Substance: LEVONORGESTREL
     Indication: CONTRACEPTION
     Dosage: 20 MCG/24HR, CONT
     Route: 015
     Dates: start: 20070814, end: 20110705

REACTIONS (10)
  - Uterine haematoma [None]
  - Pain [None]
  - Emotional distress [None]
  - Device dislocation [None]
  - Drug ineffective [None]
  - Pregnancy with contraceptive device [None]
  - Genital haemorrhage [None]
  - Premature labour [None]
  - Injury [None]
  - Device defective [None]

NARRATIVE: CASE EVENT DATE: 201104
